FAERS Safety Report 17550134 (Version 1)
Quarter: 2020Q1

REPORT INFORMATION
  Report Type: Spontaneous
  Country: IT (occurrence: IT)
  Receive Date: 20200317
  Receipt Date: 20200317
  Transmission Date: 20200409
  Serious: Yes (Hospitalization)
  Sender: FDA-Public Use
  Company Number: NVSC2020IT071494

PATIENT
  Age: 18 Year
  Sex: Female

DRUGS (1)
  1. TEGRETOL [Suspect]
     Active Substance: CARBAMAZEPINE
     Indication: PROPHYLAXIS
     Dosage: 400 MG, QD
     Route: 048
     Dates: start: 20191101, end: 20191115

REACTIONS (4)
  - Vomiting [Unknown]
  - Dysarthria [Unknown]
  - Vertigo [Unknown]
  - Nystagmus [Unknown]

NARRATIVE: CASE EVENT DATE: 20191115
